FAERS Safety Report 12644548 (Version 4)
Quarter: 2016Q4

REPORT INFORMATION
  Report Type: Spontaneous
  Country: CN (occurrence: CN)
  Receive Date: 20160811
  Receipt Date: 20161213
  Transmission Date: 20170207
  Serious: Yes (Hospitalization, Other)
  Sender: FDA-Public Use
  Company Number: PHHY2016CN106832

PATIENT
  Age: 61 Year
  Sex: Male

DRUGS (3)
  1. THIAMAZOLE [Suspect]
     Active Substance: METHIMAZOLE
     Indication: HYPERTHYROIDISM
     Dosage: 10 MG, BID
     Route: 065
  2. VALSARTAN. [Suspect]
     Active Substance: VALSARTAN
     Indication: HYPERTENSION
     Dosage: 80 MG, QD
     Route: 065
  3. METHIMAZOLE. [Suspect]
     Active Substance: METHIMAZOLE
     Route: 065

REACTIONS (10)
  - Ocular icterus [Recovering/Resolving]
  - Drug-induced liver injury [Unknown]
  - Oropharyngeal pain [Unknown]
  - Hepatic function abnormal [Recovering/Resolving]
  - Pyrexia [Unknown]
  - Pruritus [Recovering/Resolving]
  - Renal injury [Unknown]
  - Renal impairment [Recovering/Resolving]
  - Tubulointerstitial nephritis [Recovered/Resolved]
  - Chromaturia [Unknown]
